FAERS Safety Report 11719891 (Version 1)
Quarter: 2015Q4

REPORT INFORMATION
  Report Type: Spontaneous
  Country: US (occurrence: US)
  Receive Date: 20151110
  Receipt Date: 20151110
  Transmission Date: 20160304
  Serious: No
  Sender: FDA-Public Use
  Company Number: US-CTI_01803_2015

PATIENT
  Sex: Male

DRUGS (1)
  1. BETHKIS [Suspect]
     Active Substance: TOBRAMYCIN
     Indication: PRODUCT USED FOR UNKNOWN INDICATION
     Dosage: 300 MG IN 4 ML
     Dates: start: 201508

REACTIONS (5)
  - Ill-defined disorder [Unknown]
  - Laryngitis [Unknown]
  - Pharyngeal disorder [None]
  - Aphonia [Unknown]
  - Product substitution issue [None]

NARRATIVE: CASE EVENT DATE: 201508
